FAERS Safety Report 21560628 (Version 8)
Quarter: 2025Q2

REPORT INFORMATION
  Report Type: Spontaneous
  Country: CA (occurrence: CA)
  Receive Date: 20221107
  Receipt Date: 20250407
  Transmission Date: 20250717
  Serious: No
  Sender: PFIZER
  Company Number: CA-PFIZER INC-202201246041

PATIENT
  Age: 16 Year
  Sex: Female

DRUGS (4)
  1. ABRILADA [Suspect]
     Active Substance: ADALIMUMAB-AFZB
     Indication: Hidradenitis
     Dosage: 40 MG, WEEKLY (160 MG WK 0, 80MG WK 2, THEN 40MG EVERY 1 WK)
     Route: 058
     Dates: start: 20220719, end: 20221007
  2. ABRILADA [Suspect]
     Active Substance: ADALIMUMAB-AFZB
     Dosage: 40 MG, WEEKLY(160 MG WK 0,80MG WK 2,THEN 40MG EVERY1WK)
     Route: 058
     Dates: start: 20230816
  3. CLINDAMYCIN HYDROCHLORIDE [Concomitant]
     Active Substance: CLINDAMYCIN HYDROCHLORIDE
     Dates: start: 202205, end: 202209
  4. RIFAMPIN [Concomitant]
     Active Substance: RIFAMPIN
     Dates: start: 202205, end: 202209

REACTIONS (10)
  - Therapeutic response unexpected [Unknown]
  - Weight decreased [Not Recovered/Not Resolved]
  - Tooth infection [Recovering/Resolving]
  - Drug ineffective [Unknown]
  - Off label use [Unknown]
  - Product use issue [Unknown]
  - Intentional product use issue [Unknown]
  - Device defective [Unknown]
  - Device mechanical issue [Unknown]
  - Drug dose omission by device [Unknown]

NARRATIVE: CASE EVENT DATE: 20221007
